FAERS Safety Report 15285074 (Version 5)
Quarter: 2019Q1

REPORT INFORMATION
  Report Type: Spontaneous
  Country: CA (occurrence: CA)
  Receive Date: 20180816
  Receipt Date: 20190330
  Transmission Date: 20190417
  Serious: Yes (Other)
  Sender: FDA-Public Use
  Company Number: CA-CELLTRION INC.-2017CA016155

PATIENT

DRUGS (32)
  1. FOLIC ACID. [Concomitant]
     Active Substance: FOLIC ACID
     Dosage: AT 5 MG, 1X/DAY (SIX DAYS PER WEEK)
  2. AZITHROMYCIN ANHYDROUS. [Concomitant]
     Active Substance: AZITHROMYCIN ANHYDROUS
     Dosage: 250 MG (ONE TABLET DAILY)
     Route: 048
     Dates: start: 2018
  3. INFLECTRA [Suspect]
     Active Substance: INFLIXIMAB-DYYB
     Dosage: 400 MG, (EVERY 0, 2, 6 WEEKS THEN EVERY 8 WEEKS)
     Route: 042
     Dates: start: 20180803
  4. METHOTREXATE. [Concomitant]
     Active Substance: METHOTREXATE
     Dosage: AT 25 MG, WEEKLY
     Route: 058
     Dates: start: 2017
  5. PREDNISONE. [Concomitant]
     Active Substance: PREDNISONE
     Dosage: AT  75MG, 30MG DAILY, 50 MG AND 10MG ONCE DAILY
  6. OMEPRAZOLE. [Concomitant]
     Active Substance: OMEPRAZOLE
     Dosage: AT 20 MG, 1X/DAY FOR REFLUX DISEASE
  7. TUMS [Concomitant]
     Active Substance: CALCIUM CARBONATE
     Dosage: UNK
  8. CETIRIZINE [Concomitant]
     Active Substance: CETIRIZINE HYDROCHLORIDE
     Dosage: 10 MG (ONE TABLET DAILY)
     Dates: start: 2018
  9. INFLECTRA [Suspect]
     Active Substance: INFLIXIMAB-DYYB
     Dosage: 400 MG, (EVERY 0, 2, 6 WEEKS THEN EVERY 8 WEEKS)
     Route: 042
     Dates: start: 20190118
  10. METRONIDAZOLE. [Concomitant]
     Active Substance: METRONIDAZOLE
     Dosage: 250MG (TWO TABLETS TWICE DAILY)
     Route: 048
     Dates: start: 2018
  11. METHYLPREDNISOLONE. [Concomitant]
     Active Substance: METHYLPREDNISOLONE
     Dosage: UNK
     Dates: start: 20190315, end: 20190315
  12. VITAMIN B12 [Concomitant]
     Active Substance: CYANOCOBALAMIN
     Dosage: UNK
  13. NEXIUM [Concomitant]
     Active Substance: ESOMEPRAZOLE MAGNESIUM
     Dosage: UNK
  14. ACTONEL [Concomitant]
     Active Substance: RISEDRONATE SODIUM
     Dosage: AT 35 MG, WEEKLY (ONE DAY PER WEEK) FOR BONE STRENGTH
     Dates: start: 2017
  15. CELLCEPT [Concomitant]
     Active Substance: MYCOPHENOLATE MOFETIL\MYCOPHENOLATE MOFETIL HYDROCHLORIDE
     Dosage: AT 500 MG, 2X/DAY (FOR THE FIRST WEEK THEN INCREASING 1MG TWICE DAILY) TO HELP WITH SIDE EFFECTS OF
     Route: 048
     Dates: start: 2017
  16. TRAMACET [Concomitant]
     Active Substance: ACETAMINOPHEN\TRAMADOL
     Indication: HEADACHE
     Dosage: AS NEEDED
  17. GABAPENTIN. [Concomitant]
     Active Substance: GABAPENTIN
     Dosage: GABAPENTIN FOR ROTATOR CUFF PAIN AT 900 MG, DAILY
  18. LEVOTHYROXINE. [Concomitant]
     Active Substance: LEVOTHYROXINE
     Indication: HYPOTHYROIDISM
     Dosage: AT 150 MG, DAILY
  19. VITAMIN B COMPLEX [Concomitant]
     Active Substance: CYANOCOBALAMIN\DEXPANTHENOL\NIACINAMIDE\PYRIDOXINE HYDROCHLORIDE\RIBOFLAVIN 5^-PHOSPHATE SODIUM\THIAMINE HYDROCHLORIDE\VITAMIN B COMPLEX
     Dosage: UNK
  20. NYSTATIN. [Concomitant]
     Active Substance: NYSTATIN
     Dosage: 100 000 U/ML SUSPENSION TO TAKE ONE ML 4X A DAY - INCASE OF A YEAST INFECTION
     Dates: start: 2018
  21. INFLECTRA [Suspect]
     Active Substance: INFLIXIMAB-DYYB
     Dosage: 400 MG, (EVERY 0, 2, 6 WEEKS THEN EVERY 8 WEEKS)
     Route: 042
     Dates: start: 20181123
  22. INFLECTRA [Suspect]
     Active Substance: INFLIXIMAB-DYYB
     Dosage: 400 MG, (EVERY 0, 2, 6 WEEKS THEN EVERY 8 WEEKS)
     Route: 042
     Dates: start: 20190315
  23. VITAMIN D [Concomitant]
     Active Substance: CHOLECALCIFEROL
     Dosage: T 2000 IU, DAILY
     Dates: start: 2017
  24. INFLECTRA [Suspect]
     Active Substance: INFLIXIMAB-DYYB
     Dosage: 400 MG, (EVERY 0, 2, 6 WEEKS THEN EVERY 8 WEEKS)
     Route: 042
     Dates: start: 20180608
  25. ZOPICLONE [Concomitant]
     Active Substance: ZOPICLONE
     Indication: INSOMNIA
     Dosage: AT 7.5 MG, 1X/DAY (AT NIGHT)
  26. INFLECTRA [Suspect]
     Active Substance: INFLIXIMAB-DYYB
     Indication: IDIOPATHIC ORBITAL INFLAMMATION
     Dosage: 400 MG, CYCLIC (EVERY 0, 2, 6 WEEKS THEN EVERY 8 WEEKS)
     Route: 042
     Dates: start: 20180103
  27. INFLECTRA [Suspect]
     Active Substance: INFLIXIMAB-DYYB
     Dosage: 400 MG, (EVERY 0, 2, 6 WEEKS THEN EVERY 8 WEEKS)
     Route: 042
     Dates: start: 20180117
  28. NORTRIPTYLINE [Concomitant]
     Active Substance: NORTRIPTYLINE
     Dosage: AT 10 MG, DAILY
  29. CALCIUM [Concomitant]
     Active Substance: CALCIUM
     Dosage: AT 500 MG, 2X/DAY
     Dates: start: 2017
  30. MULTI VITAMIN [Concomitant]
     Active Substance: VITAMINS
     Dosage: UNK
  31. MELATONIN [Concomitant]
     Active Substance: MELATONIN
     Dosage: UNK
  32. VORICONAZOLE. [Concomitant]
     Active Substance: VORICONAZOLE
     Dosage: 200 MG (ONE TABLET TWICE DAILY)
     Route: 048
     Dates: start: 2018

REACTIONS (12)
  - Asthenopia [Not Recovered/Not Resolved]
  - Fatigue [Not Recovered/Not Resolved]
  - Blood pressure fluctuation [Unknown]
  - Ear swelling [Unknown]
  - Blood pressure decreased [Unknown]
  - Sinus congestion [Recovered/Resolved]
  - Head discomfort [Not Recovered/Not Resolved]
  - Headache [Not Recovered/Not Resolved]
  - Eye swelling [Recovering/Resolving]
  - Product use in unapproved indication [Unknown]
  - Erythema [Unknown]
  - Nasopharyngitis [Recovering/Resolving]

NARRATIVE: CASE EVENT DATE: 201801
